FAERS Safety Report 6177398-X (Version None)
Quarter: 2009Q2

REPORT INFORMATION
  Report Type: 
  Country: None (occurrence: None)
  Receive Date: 20090504
  Receipt Date: 20090501
  Transmission Date: 20091009
  Serious: Yes (Other)
  Sender: FDA-Public Use
  Company Number: US-BAYER-200825970NA

PATIENT
  Age: 23 Year
  Sex: Female
  Weight: 96 kg

DRUGS (5)
  1. MIRENA [Suspect]
     Indication: CONTRACEPTION
     Route: 015
     Dates: start: 20070911
  2. MIRENA [Suspect]
     Dosage: CONTINUOUS
     Route: 015
     Dates: start: 20071113
  3. ANAPROX [Concomitant]
  4. LEXAPRO [Concomitant]
  5. PHENTERMINE [Concomitant]

REACTIONS (2)
  - IUCD COMPLICATION [None]
  - IUD MIGRATION [None]
